FAERS Safety Report 17576373 (Version 1)
Quarter: 2020Q1

REPORT INFORMATION
  Report Type: Spontaneous
  Country: US (occurrence: US)
  Receive Date: 20200324
  Receipt Date: 20200324
  Transmission Date: 20200409
  Serious: No
  Sender: FDA-Public Use
  Company Number: US-ACORDA-ACO_163079_2019

PATIENT
  Age: 80 Year
  Sex: Male

DRUGS (2)
  1. INBRIJA [Suspect]
     Active Substance: LEVODOPA
     Indication: ON AND OFF PHENOMENON
  2. INBRIJA [Suspect]
     Active Substance: LEVODOPA
     Indication: PARKINSON^S DISEASE
     Dosage: 84 MILLIGRAM, PRN, NOT TO EXCEED 5 DOSES A DAY
     Dates: start: 20191229

REACTIONS (9)
  - Wrong technique in product usage process [Unknown]
  - Educational problem [Unknown]
  - Dizziness [Unknown]
  - Product storage error [Unknown]
  - Incorrect dose administered by device [Unknown]
  - Incorrect dose administered [Unknown]
  - Product physical issue [Unknown]
  - Cough [Unknown]
  - Device issue [Unknown]

NARRATIVE: CASE EVENT DATE: 20191229
